FAERS Safety Report 7161061-2 (Version None)
Quarter: 2010Q4

REPORT INFORMATION
  Report Type: 
  Country: None (occurrence: None)
  Receive Date: 20101214
  Receipt Date: 20091202
  Transmission Date: 20110411
  Serious: No
  Sender: FDA-Public Use
  Company Number: US-AMGEN-KDL377965

PATIENT

DRUGS (13)
  1. ENBREL [Suspect]
     Indication: PRODUCT USED FOR UNKNOWN INDICATION
     Dosage: 50 MG, QWK
     Route: 058
  2. CALCIUM CARBONATE [Concomitant]
  3. VENLAFAXINE HCL [Concomitant]
     Dosage: 75 MG, UNK
  4. ACETAMINOPHEN AND HYDROCODONE BITARTRATE [Concomitant]
     Dosage: 500 MG, UNK
  5. FOLIC ACID [Concomitant]
     Dosage: 1 MG, UNK
  6. ASCORBIC ACID [Concomitant]
     Dosage: 250 MG, UNK
  7. METAXALONE [Concomitant]
     Dosage: 800 MG, UNK
  8. VITAMIN B COMPLEX [Concomitant]
  9. COENZYME Q10 [Concomitant]
  10. FISH OIL [Concomitant]
  11. ERGOCALCIFEROL [Concomitant]
     Dosage: 1000 IU/KG, UNK
  12. MULTI-VITAMINS [Concomitant]
  13. METHOTREXATE [Concomitant]
     Dosage: 1 G, UNK

REACTIONS (4)
  - INJECTION SITE ERYTHEMA [None]
  - INJECTION SITE PRURITUS [None]
  - INJECTION SITE SWELLING [None]
  - LOCALISED INFECTION [None]
